FAERS Safety Report 5079311-5 (Version None)
Quarter: 2006Q3

REPORT INFORMATION
  Report Type: 
  Country: None (occurrence: None)
  Receive Date: 20060814
  Receipt Date: 20051202
  Transmission Date: 20061208
  Serious: Yes (Hospitalization)
  Sender: FDA-Public Use
  Company Number: US-AVENTIS-200520151US

PATIENT
  Sex: Male
  Weight: 20 kg

DRUGS (5)
  1. LANTUS [Suspect]
     Indication: DIABETES MELLITUS INSULIN-DEPENDENT
     Route: 051
     Dates: start: 20041101, end: 20051206
  2. LANTUS [Suspect]
     Dosage: DOSE: 3 + 3
     Route: 051
     Dates: start: 20051206
  3. LANTUS [Suspect]
     Dosage: DOSE: 5 UNITS IN AM, 3 UNITS IN PM
  4. OPTICLIK (INSULIN INJECTION PEN) [Suspect]
     Indication: DIABETES MELLITUS INSULIN-DEPENDENT
     Dosage: DOSE: UNKNOWN
  5. NOVOLOG [Concomitant]
     Indication: DIABETES MELLITUS INSULIN-DEPENDENT
     Dosage: DOSE: 6-10 UNITS PER DAY
     Dates: start: 20041012

REACTIONS (7)
  - BLOOD GLUCOSE DECREASED [None]
  - BLOOD GLUCOSE INCREASED [None]
  - INJECTION SITE IRRITATION [None]
  - INJECTION SITE PAIN [None]
  - KETOACIDOSIS [None]
  - PYREXIA [None]
  - VOMITING [None]
